FAERS Safety Report 8023763-5 (Version None)
Quarter: 2012Q1

REPORT INFORMATION
  Report Type: 
  Country: None (occurrence: None)
  Receive Date: 20120105
  Receipt Date: 20111229
  Transmission Date: 20120608
  Serious: Yes (Disabling)
  Sender: FDA-Public Use
  Company Number: FI-ELI_LILLY_AND_COMPANY-FI201112001054

PATIENT
  Sex: Female

DRUGS (4)
  1. CYMBALTA [Suspect]
     Indication: DEPRESSION
     Dosage: 60 MG, QD
     Route: 048
     Dates: start: 20100201
  2. ZOPINOX [Concomitant]
     Dosage: 7.5 MG, UNK
  3. MELATONIN [Concomitant]
     Dosage: 5 MG, PRN
  4. SERTRALINE HYDROCHLORIDE [Concomitant]
     Dosage: 100 MG, QD
     Route: 048
     Dates: end: 20110201

REACTIONS (1)
  - FOLLICULITIS [None]
